FAERS Safety Report 24525152 (Version 1)
Quarter: 2024Q4

REPORT INFORMATION
  Report Type: Spontaneous
  Country: FR (occurrence: FR)
  Receive Date: 20241019
  Receipt Date: 20241019
  Transmission Date: 20250114
  Serious: Yes (Life-Threatening, Hospitalization)
  Sender: ACCORD
  Company Number: None

PATIENT
  Age: 81 Year
  Sex: Female
  Weight: 64 kg

DRUGS (24)
  1. FUROSEMIDE [Suspect]
     Active Substance: FUROSEMIDE
     Indication: Hypertension
     Dosage: LONG COURSE
  2. METFORMIN [Suspect]
     Active Substance: METFORMIN HYDROCHLORIDE
     Indication: Diabetes mellitus
     Dosage: LONG COURSE
     Dates: end: 20240315
  3. ALDACTONE [Suspect]
     Active Substance: SPIRONOLACTONE
     Indication: Hypertension
     Dosage: LONG COURSE
  4. FLUOXETINE HYDROCHLORIDE [Concomitant]
     Active Substance: FLUOXETINE HYDROCHLORIDE
  5. ACETAMINOPHEN [Concomitant]
     Active Substance: ACETAMINOPHEN
  6. ATORVASTATIN [Concomitant]
     Active Substance: ATORVASTATIN
  7. LEVOTHYROXINE [Concomitant]
     Active Substance: LEVOTHYROXINE
  8. ECONAZOLE [Concomitant]
     Active Substance: ECONAZOLE
  9. FOLIC ACID [Concomitant]
     Active Substance: FOLIC ACID
  10. EMPAGLIFLOZIN [Concomitant]
     Active Substance: EMPAGLIFLOZIN
  11. LEVETIRACETAM [Concomitant]
     Active Substance: LEVETIRACETAM
  12. AMIODARONE [Concomitant]
     Active Substance: AMIODARONE
  13. AMLODIPINE [Concomitant]
     Active Substance: AMLODIPINE BESYLATE
  14. RISPERIDONE [Concomitant]
     Active Substance: RISPERIDONE
  15. RAMIPRIL [Concomitant]
     Active Substance: RAMIPRIL
  16. FERROUS SULFATE [Concomitant]
     Active Substance: FERROUS SULFATE
  17. LANSOPRAZOLE [Concomitant]
     Active Substance: LANSOPRAZOLE
  18. POLYETHYLENE GLYCOLS [Concomitant]
     Active Substance: POLYETHYLENE GLYCOLS
  19. KARDEGIC [Concomitant]
     Active Substance: ASPIRIN DL-LYSINE
  20. UN-ALPHA [Concomitant]
  21. LATANOPROST\TIMOLOL MALEATE [Concomitant]
     Active Substance: LATANOPROST\TIMOLOL MALEATE
  22. CALCIDOSE [Concomitant]
  23. JANUVIA [Concomitant]
     Active Substance: SITAGLIPTIN PHOSPHATE
  24. OXAZEPAM [Concomitant]
     Active Substance: OXAZEPAM

REACTIONS (4)
  - Hyperlactacidaemia [Recovered/Resolved]
  - Acute kidney injury [Recovering/Resolving]
  - Hyperkalaemia [Recovered/Resolved]
  - Metabolic acidosis [Recovered/Resolved]

NARRATIVE: CASE EVENT DATE: 20240425
